FAERS Safety Report 4998584-8 (Version None)
Quarter: 2006Q2

REPORT INFORMATION
  Report Type: 
  Country: None (occurrence: None)
  Receive Date: 20060510
  Receipt Date: 20060504
  Transmission Date: 20061013
  Serious: Yes (Other)
  Sender: FDA-Public Use
  Company Number: US-BRISTOL-MYERS SQUIBB COMPANY-13368105

PATIENT
  Age: 77 Year
  Sex: Female

DRUGS (9)
  1. TEQUIN [Suspect]
     Dosage: THERAPY: 13-APR-2006 TO 16-APR-2006; RESTARTED APR-2006 AND DISCONTINUED AFTER 1 DOSE.
     Dates: start: 20060413, end: 20060401
  2. STARLIX [Concomitant]
  3. ACTOS [Concomitant]
  4. SYNTHROID [Concomitant]
  5. TRICOR [Concomitant]
  6. LISINOPRIL [Concomitant]
  7. FUROSEMIDE [Concomitant]
  8. NEXIUM [Concomitant]
  9. ZITHROMAX [Concomitant]
     Indication: PNEUMONIA
     Dates: start: 20060401, end: 20060401

REACTIONS (1)
  - BLINDNESS [None]
